FAERS Safety Report 9340560 (Version 2)
Quarter: 2013Q3

REPORT INFORMATION
  Report Type: Spontaneous
  Country: PT (occurrence: PT)
  Receive Date: 20130610
  Receipt Date: 20130711
  Transmission Date: 20140515
  Serious: Yes (Death, Hospitalization, Other)
  Sender: FDA-Public Use
  Company Number: PT-INCYTE CORPORATION-2013IN000462

PATIENT
  Age: 64 Year
  Sex: Female

DRUGS (1)
  1. JAKAVI [Suspect]
     Indication: MYELOFIBROSIS
     Dosage: UNK UNK, UNK
     Route: 065
     Dates: start: 20130114, end: 20130509

REACTIONS (10)
  - Death [Fatal]
  - Respiratory tract infection [None]
  - Leukaemia [Unknown]
  - Anxiety [Unknown]
  - Myelocytosis [Unknown]
  - White blood cell count increased [Unknown]
  - Leukocytosis [None]
  - Blast cells present [Unknown]
  - Nervous system disorder [Unknown]
  - Haemoglobin decreased [Unknown]
